FAERS Safety Report 18517944 (Version 1)
Quarter: 2020Q4

REPORT INFORMATION
  Report Type: Spontaneous
  Country: DE (occurrence: DE)
  Receive Date: 20201118
  Receipt Date: 20201118
  Transmission Date: 20210114
  Serious: Yes (Life-Threatening, Hospitalization)
  Sender: FDA-Public Use
  Company Number: DE-TEVA-2020-DE-1848660

PATIENT
  Age: 74 Year
  Sex: Female

DRUGS (5)
  1. CAPECITABIN [Suspect]
     Active Substance: CAPECITABINE
     Dosage: 500 MG, PAUSED
     Route: 065
  2. CARMEN (LERCANIDIPINE) [Suspect]
     Active Substance: LERCANIDIPINE
     Dosage: 20 MILLIGRAM DAILY; 1-0-0-0
  3. HYDROCHLOROTHIAZID/RAMIPRIL [Suspect]
     Active Substance: HYDROCHLOROTHIAZIDE\RAMIPRIL
     Dosage: 1 DOSAGE FORMS DAILY; 25|5 MG, 1-0-0-0
     Route: 065
  4. PARACETAMOL [Suspect]
     Active Substance: ACETAMINOPHEN
     Dosage: 4X
     Route: 065
  5. BELOC (METOPROLOL TARTRATE) [Suspect]
     Active Substance: METOPROLOL TARTRATE
     Dosage: 5 MILLIGRAM DAILY; 1-0-0-0

REACTIONS (6)
  - Dizziness [Unknown]
  - Hepatic failure [Unknown]
  - Hypotension [Unknown]
  - Abdominal pain [Unknown]
  - Vertigo [Unknown]
  - Sepsis [Unknown]
